FAERS Safety Report 5175296-1 (Version None)
Quarter: 2006Q4

REPORT INFORMATION
  Report Type: 
  Country: None (occurrence: None)
  Receive Date: 20061211
  Receipt Date: 20061211
  Transmission Date: 20070319
  Serious: No
  Sender: FDA-Public Use
  Company Number: None

PATIENT
  Age: 24 Year
  Sex: Female
  Weight: 58.9676 kg

DRUGS (4)
  1. ORTHO TRI-CYCLEN [Suspect]
     Indication: CONTRACEPTION
     Dosage: 1 TAB DAILY PO
     Route: 048
     Dates: start: 20060801, end: 20061209
  2. ORTHO TRI-CYCLEN [Suspect]
     Indication: MENSTRUATION IRREGULAR
     Dosage: 1 TAB DAILY PO
     Route: 048
     Dates: start: 20060801, end: 20061209
  3. STRATTERA [Concomitant]
  4. LEXAPRO [Concomitant]

REACTIONS (4)
  - HEADACHE [None]
  - HYPERACUSIS [None]
  - PAIN [None]
  - PHOTOPHOBIA [None]
